FAERS Safety Report 8805204 (Version 1)
Quarter: 2012Q4

REPORT INFORMATION
  Report Type: 
  Country: GB (occurrence: GB)
  Receive Date: 20120924
  Receipt Date: 20120924
  Transmission Date: 20130627
  Serious: Yes (Hospitalization, Other)
  Sender: FDA-Public Use
  Company Number: GB-ROCHE-1130950

PATIENT

DRUGS (1)
  1. MABTHERA [Suspect]
     Indication: RHEUMATOID ARTHRITIS
     Route: 065

REACTIONS (10)
  - Neutropenia [Recovered/Resolved]
  - Infection [Unknown]
  - Infusion related reaction [Unknown]
  - Serum sickness [Recovering/Resolving]
  - Hypogammaglobulinaemia [Unknown]
  - Breast cancer [Unknown]
  - Gastrointestinal carcinoma [Unknown]
  - Renal cancer [Unknown]
  - Psoriasis [Unknown]
  - Cutaneous lupus erythematosus [Unknown]
